FAERS Safety Report 17663478 (Version 2)
Quarter: 2020Q2

REPORT INFORMATION
  Report Type: Report from Study
  Country: US (occurrence: US)
  Receive Date: 20200414
  Receipt Date: 20200610
  Transmission Date: 20200713
  Serious: Yes (Other)
  Sender: FDA-Public Use
  Company Number: US-INCYTE CORPORATION-2020IN003435

PATIENT

DRUGS (3)
  1. JAKAFI [Suspect]
     Active Substance: RUXOLITINIB
     Indication: MYELOFIBROSIS
     Dosage: 10 MILLIGRAM, BID
     Route: 048
     Dates: start: 201606
  2. JAKAFI [Suspect]
     Active Substance: RUXOLITINIB
     Dosage: 10 MILLIGRAM, BID
     Route: 048
  3. CORTISONE [Suspect]
     Active Substance: CORTISONE
     Indication: ARTHROPATHY
     Dosage: UNK
     Route: 065
     Dates: start: 20191224

REACTIONS (11)
  - Arthropathy [Unknown]
  - Pain [Unknown]
  - Angina pectoris [Recovering/Resolving]
  - Dysstasia [Unknown]
  - Movement disorder [Unknown]
  - Contusion [Unknown]
  - Cardiac disorder [Unknown]
  - Peripheral swelling [Unknown]
  - Skin discolouration [Unknown]
  - Increased tendency to bruise [Unknown]
  - Mass [Unknown]

NARRATIVE: CASE EVENT DATE: 2018
